FAERS Safety Report 18153505 (Version 2)
Quarter: 2020Q4

REPORT INFORMATION
  Report Type: Report from Study
  Country: US (occurrence: US)
  Receive Date: 20200816
  Receipt Date: 20201023
  Transmission Date: 20210113
  Serious: Yes (Death, Life-Threatening, Hospitalization)
  Sender: FDA-Public Use
  Company Number: NVSC2020US219443

PATIENT
  Age: 68 Year
  Sex: Male

DRUGS (8)
  1. CYCLOPHOSPHAMIDE. [Suspect]
     Active Substance: CYCLOPHOSPHAMIDE
     Indication: SQUAMOUS CELL CARCINOMA OF THE ORAL CAVITY
     Dosage: 4.794 MG, Q24H (NORMAL SALINE, 250ML)
     Route: 042
     Dates: start: 20200716, end: 20200717
  2. LASIX [Concomitant]
     Active Substance: FUROSEMIDE
     Indication: PRODUCT USED FOR UNKNOWN INDICATION
     Dosage: UNK
     Route: 065
  3. FLUDARABINE PHOSPHATE. [Suspect]
     Active Substance: FLUDARABINE PHOSPHATE
     Indication: SQUAMOUS CELL CARCINOMA OF THE ORAL CAVITY
     Dosage: 47.5 MG, Q24H (NS)
     Route: 042
     Dates: start: 20200718, end: 20200722
  4. ALBUMIN [Concomitant]
     Active Substance: ALBUMIN HUMAN
     Indication: PRODUCT USED FOR UNKNOWN INDICATION
     Dosage: UNK
     Route: 065
  5. SILTUXIMAB [Concomitant]
     Active Substance: SILTUXIMAB
     Indication: IMMUNE EFFECTOR CELL-ASSOCIATED NEUROTOXICITY SYNDROME
     Dosage: UNK
     Route: 065
  6. METHYLPREDNISOLONE. [Concomitant]
     Active Substance: METHYLPREDNISOLONE
     Dosage: 500 MG, BID
     Route: 065
  7. METHYLPREDNISOLONE. [Concomitant]
     Active Substance: METHYLPREDNISOLONE
     Indication: IMMUNE EFFECTOR CELL-ASSOCIATED NEUROTOXICITY SYNDROME
     Dosage: 500 MG, Q12H
     Route: 042
  8. PROLEUKIN [Suspect]
     Active Substance: ALDESLEUKIN
     Indication: SQUAMOUS CELL CARCINOMA OF THE ORAL CAVITY
     Dosage: 48 IU, Q8H
     Route: 042
     Dates: start: 20200724, end: 20200726

REACTIONS (16)
  - Delirium [Unknown]
  - Blood creatinine increased [Unknown]
  - Disorientation [Unknown]
  - Distributive shock [Fatal]
  - Acute respiratory failure [Fatal]
  - Hallucination [Unknown]
  - Fibrin D dimer increased [Unknown]
  - Hyperuricaemia [Fatal]
  - Encephalopathy [Recovering/Resolving]
  - Electroencephalogram abnormal [Unknown]
  - Confusional state [Unknown]
  - Acute kidney injury [Fatal]
  - Blood gases abnormal [Unknown]
  - Hypotension [Unknown]
  - Hyporesponsive to stimuli [Unknown]
  - Blood urea increased [Unknown]

NARRATIVE: CASE EVENT DATE: 20200725
